FAERS Safety Report 8381917-2 (Version None)
Quarter: 2012Q2

REPORT INFORMATION
  Report Type: 
  Country: None (occurrence: None)
  Receive Date: 20120522
  Receipt Date: 20120522
  Transmission Date: 20120825
  Serious: Yes (Hospitalization)
  Sender: FDA-Public Use
  Company Number: None

PATIENT
  Age: 54 Year
  Sex: Female
  Weight: 81.6 kg

DRUGS (1)
  1. RISPERIDONE [Suspect]
     Dosage: 1MG TID PO; 2MG QHS PO
     Route: 048
     Dates: start: 20120327, end: 20120404

REACTIONS (3)
  - HEART RATE DECREASED [None]
  - UNRESPONSIVE TO STIMULI [None]
  - HYPOTHERMIA [None]
